FAERS Safety Report 23759975 (Version 1)
Quarter: 2024Q2

REPORT INFORMATION
  Report Type: Spontaneous
  Country: RU (occurrence: RU)
  Receive Date: 20240419
  Receipt Date: 20240419
  Transmission Date: 20240716
  Serious: Yes (Hospitalization, Other)
  Sender: FDA-Public Use
  Company Number: RU-SUN PHARMACEUTICAL INDUSTRIES LTD-2024R1-441911

PATIENT
  Age: 12 Year
  Sex: Female

DRUGS (1)
  1. SULFASALAZINE [Suspect]
     Active Substance: SULFASALAZINE
     Indication: Juvenile idiopathic arthritis

REACTIONS (4)
  - Haemophagocytic lymphohistiocytosis [Unknown]
  - Ascites [Unknown]
  - Pericardial effusion [Unknown]
  - Hypersensitivity [Unknown]
